FAERS Safety Report 21045557 (Version 2)
Quarter: 2022Q3

REPORT INFORMATION
  Report Type: Spontaneous
  Country: FR (occurrence: FR)
  Receive Date: 20220706
  Receipt Date: 20220710
  Transmission Date: 20221027
  Serious: Yes (Other)
  Sender: FDA-Public Use
  Company Number: FR-CELLTRION INC.-2022FR010443

PATIENT

DRUGS (7)
  1. RITUXIMAB [Suspect]
     Active Substance: RITUXIMAB
     Indication: Renal transplant
     Dosage: 375 MG/M2 AT DAY 0 POST-TRANSPLANTATION (ADDITIONAL INFORMATION ON DRUG (CODED): OFF LABEL USE)
     Route: 041
  2. RITUXIMAB [Suspect]
     Active Substance: RITUXIMAB
     Indication: Epstein-Barr viraemia
     Dosage: 375 MG/M2 AT D0
  3. RITUXIMAB [Suspect]
     Active Substance: RITUXIMAB
     Indication: Prophylaxis against transplant rejection
     Dosage: 375 MG/M2 AT D0
  4. VALGANCICLOVIR [Concomitant]
     Active Substance: VALGANCICLOVIR
     Indication: Antiviral prophylaxis
     Dosage: UNK
  5. DEXCHLORPHENIRAMINE [Concomitant]
     Active Substance: DEXCHLORPHENIRAMINE
  6. PREDNISONE [Concomitant]
     Active Substance: PREDNISONE
  7. ACETAMINOPHEN [Concomitant]
     Active Substance: ACETAMINOPHEN

REACTIONS (4)
  - Neutropenia [Unknown]
  - Product use issue [Unknown]
  - Product use in unapproved indication [Unknown]
  - Off label use [Unknown]
